FAERS Safety Report 8678680 (Version 2)
Quarter: 2012Q4

REPORT INFORMATION
  Report Type: Report from Study
  Country: US (occurrence: US)
  Receive Date: 20120723
  Receipt Date: 20121121
  Transmission Date: 20130627
  Serious: Yes (Other)
  Sender: FDA-Public Use
  Company Number: US-ALLERGAN-1209838US

PATIENT
  Age: 59 Year
  Sex: Female

DRUGS (2)
  1. DEXAMETHASONE [Suspect]
     Indication: POSTOPERATIVE CARE
     Dosage: 60 ?g, single
     Route: 031
     Dates: start: 20120702, end: 20120702
  2. DEXAMETHASONE [Suspect]
     Indication: PROCEDURAL PAIN

REACTIONS (1)
  - Corneal oedema [Recovered/Resolved]
